FAERS Safety Report 7439643-X (Version None)
Quarter: 2011Q2

REPORT INFORMATION
  Report Type: 
  Country: None (occurrence: None)
  Receive Date: 20110427
  Receipt Date: 20110418
  Transmission Date: 20111010
  Serious: Yes (Hospitalization)
  Sender: FDA-Public Use
  Company Number: BR-BAXTER-2011BH004316

PATIENT
  Age: 29 Year
  Sex: Female
  Weight: 43 kg

DRUGS (7)
  1. MESNA [Suspect]
     Indication: PROPHYLAXIS
     Route: 042
     Dates: start: 20110117, end: 20110119
  2. ETOPOSIDE [Suspect]
     Indication: PRODUCT USED FOR UNKNOWN INDICATION
     Route: 042
     Dates: start: 20110117, end: 20110119
  3. MORPHINE [Concomitant]
     Indication: PRODUCT USED FOR UNKNOWN INDICATION
     Route: 048
  4. PARACETAMOL [Concomitant]
     Indication: PRODUCT USED FOR UNKNOWN INDICATION
     Route: 048
  5. DEXAMETHASONE [Suspect]
     Indication: PRODUCT USED FOR UNKNOWN INDICATION
     Route: 042
     Dates: start: 20110117, end: 20110119
  6. HOLOXAN BAXTER [Suspect]
     Indication: RHABDOMYOSARCOMA
     Route: 042
     Dates: start: 20110117, end: 20110119
  7. ONDANSETRON, UNSPECIFIED [Suspect]
     Indication: PRODUCT USED FOR UNKNOWN INDICATION
     Route: 042
     Dates: start: 20110117, end: 20110119

REACTIONS (2)
  - DYSURIA [None]
  - FEBRILE NEUTROPENIA [None]
